FAERS Safety Report 23522231 (Version 3)
Quarter: 2024Q1

REPORT INFORMATION
  Report Type: Spontaneous
  Country: US (occurrence: US)
  Receive Date: 20240214
  Receipt Date: 20240326
  Transmission Date: 20240409
  Serious: No
  Sender: FDA-Public Use
  Company Number: US-ALKERMES INC.-ALK-2024-000299

PATIENT
  Age: 37 Year
  Sex: Male

DRUGS (2)
  1. VIVITROL [Suspect]
     Active Substance: NALTREXONE
     Indication: Substance abuse
     Dosage: 380 MILLIGRAM, Q28D
     Dates: start: 20240301
  2. VIVITROL [Suspect]
     Active Substance: NALTREXONE
     Indication: Alcoholism
     Dosage: 380 MILLIGRAM, Q28D
     Route: 030
     Dates: start: 20240130

REACTIONS (5)
  - Off label use [Recovering/Resolving]
  - Pain [Unknown]
  - Injection site pain [Recovered/Resolved]
  - Nausea [Recovered/Resolved]
  - Disorientation [Recovered/Resolved]

NARRATIVE: CASE EVENT DATE: 20240130
